FAERS Safety Report 12698798 (Version 2)
Quarter: 2016Q3

REPORT INFORMATION
  Report Type: Spontaneous
  Country: CA (occurrence: CA)
  Receive Date: 20160830
  Receipt Date: 20160905
  Transmission Date: 20161109
  Serious: Yes (Hospitalization, Other)
  Sender: FDA-Public Use
  Company Number: CA-TAKEDA-2016TUS014956

PATIENT
  Age: 49 Year
  Sex: Male

DRUGS (9)
  1. PERPHENAZINE. [Concomitant]
     Active Substance: PERPHENAZINE
     Dosage: 16 MG, QD
     Dates: start: 2012
  2. DEXILANT [Suspect]
     Active Substance: DEXLANSOPRAZOLE
     Indication: GASTROOESOPHAGEAL REFLUX DISEASE
     Dosage: 60 MG, UNK
     Route: 065
     Dates: start: 2014
  3. FERROUS SULFATE. [Concomitant]
     Active Substance: FERROUS SULFATE
     Dosage: 300 MG, BID
     Dates: start: 2015
  4. RIVOTRIL [Concomitant]
     Active Substance: CLONAZEPAM
     Dosage: 2 MG, TID
  5. SALOFALK [Concomitant]
     Active Substance: MESALAMINE
     Dosage: 500 MG, UNK
     Dates: start: 2006, end: 2015
  6. PREDNISONE. [Concomitant]
     Active Substance: PREDNISONE
     Dosage: 45 MG, UNK
  7. CLONAZEPAM. [Concomitant]
     Active Substance: CLONAZEPAM
     Dosage: 2 MG, TID
     Dates: start: 1998
  8. CARBOLITH [Concomitant]
     Active Substance: LITHIUM CARBONATE
     Dosage: 300 MG, QID
     Dates: start: 2009
  9. SIMPONI [Concomitant]
     Active Substance: GOLIMUMAB
     Dosage: 100 MG, MONTHLY
     Dates: start: 2015

REACTIONS (9)
  - Colitis ulcerative [Unknown]
  - Iron deficiency anaemia [Unknown]
  - Peptic ulcer [Unknown]
  - Glucose tolerance impaired [Unknown]
  - Eating disorder [Recovering/Resolving]
  - Psychiatric symptom [Unknown]
  - Insomnia [Unknown]
  - Fatigue [Recovering/Resolving]
  - Irritability [Unknown]

NARRATIVE: CASE EVENT DATE: 201607
